FAERS Safety Report 22282925 (Version 1)
Quarter: 2023Q2

REPORT INFORMATION
  Report Type: Spontaneous
  Country: PL (occurrence: PL)
  Receive Date: 20230504
  Receipt Date: 20230504
  Transmission Date: 20230721
  Serious: Yes (Other)
  Sender: FDA-Public Use
  Company Number: PL-KRKA-PL2023K03808LIT

PATIENT
  Age: 46 Year
  Sex: Female
  Weight: 72.3 kg

DRUGS (2)
  1. SERTRALINE [Suspect]
     Active Substance: SERTRALINE HYDROCHLORIDE
     Indication: Depression
     Dosage: 100 MG/24 H, FOR NEARLY YEAR
  2. MIRTAZAPINE [Suspect]
     Active Substance: MIRTAZAPINE
     Indication: Depression
     Dosage: 30 MG/NIGHT

REACTIONS (3)
  - Weight increased [Recovered/Resolved]
  - Indifference [Unknown]
  - Mental impairment [Unknown]
